FAERS Safety Report 14204804 (Version 1)
Quarter: 2017Q4

REPORT INFORMATION
  Report Type: Spontaneous
  Country: US (occurrence: US)
  Receive Date: 20171118
  Receipt Date: 20171118
  Transmission Date: 20180321
  Serious: No
  Sender: FDA-Public Use
  Company Number: None

PATIENT
  Age: 35 Year
  Sex: Female
  Weight: 67.5 kg

DRUGS (1)
  1. PLAQUENIL [Suspect]
     Active Substance: HYDROXYCHLOROQUINE SULFATE
     Indication: SJOGREN^S SYNDROME
     Dosage: ?          QUANTITY:1 TABLET(S);?
     Route: 048
     Dates: start: 20171115, end: 20171117

REACTIONS (11)
  - Eye pain [None]
  - Anxiety [None]
  - Nausea [None]
  - Feeling cold [None]
  - Headache [None]
  - Hot flush [None]
  - Vomiting [None]
  - Dizziness [None]
  - Tremor [None]
  - Crying [None]
  - Diarrhoea [None]
